FAERS Safety Report 5455401-X (Version None)
Quarter: 2007Q3

REPORT INFORMATION
  Report Type: 
  Country: None (occurrence: None)
  Receive Date: 20070913
  Receipt Date: 20070913
  Transmission Date: 20080115
  Serious: Yes (Life-Threatening)
  Sender: FDA-Public Use
  Company Number: None

PATIENT
  Age: 66 Year
  Sex: Female
  Weight: 81.6475 kg

DRUGS (2)
  1. BENICAR HCT [Suspect]
     Indication: HYPERTENSION
     Dosage: ONE TABLET DAILY PO
     Route: 048
     Dates: start: 20070228, end: 20070507
  2. BENICAR [Suspect]
     Indication: HYPERTENSION
     Dosage: ONE TABLET DAILY PO
     Route: 048
     Dates: start: 20070512, end: 20070522

REACTIONS (10)
  - DIZZINESS [None]
  - DRUG HYPERSENSITIVITY [None]
  - DRUG TOXICITY [None]
  - FUNGAL INFECTION [None]
  - IMPAIRED DRIVING ABILITY [None]
  - PRURITUS [None]
  - RENAL FAILURE ACUTE [None]
  - SKIN LESION [None]
  - SKIN REACTION [None]
  - URTICARIA [None]
